FAERS Safety Report 6105650-2 (Version None)
Quarter: 2009Q1

REPORT INFORMATION
  Report Type: 
  Country: None (occurrence: None)
  Receive Date: 20090306
  Receipt Date: 20090223
  Transmission Date: 20090719
  Serious: Yes (Death, Hospitalization)
  Sender: FDA-Public Use
  Company Number: PH-BAXTER-2009BH002975

PATIENT
  Age: 75 Year
  Sex: Male

DRUGS (1)
  1. DIANEAL [Suspect]
     Indication: RENAL FAILURE CHRONIC
     Route: 033
     Dates: start: 20070324

REACTIONS (4)
  - ASTHENIA [None]
  - DYSPNOEA [None]
  - MALAISE [None]
  - SEPTIC SHOCK [None]
